FAERS Safety Report 9654628 (Version 2)
Quarter: 2014Q2

REPORT INFORMATION
  Report Type: Spontaneous
  Country: US (occurrence: US)
  Receive Date: 20131029
  Receipt Date: 20140423
  Transmission Date: 20141212
  Serious: No
  Sender: FDA-Public Use
  Company Number: US-BIOGENIDEC-2013BI085483

PATIENT
  Age: 55 Year
  Sex: Female

DRUGS (13)
  1. TECFIDERA [Suspect]
     Indication: MULTIPLE SCLEROSIS
     Route: 048
     Dates: start: 20130816
  2. TECFIDERA [Suspect]
     Indication: MULTIPLE SCLEROSIS
     Route: 048
     Dates: start: 20140310
  3. TECFIDERA [Suspect]
     Indication: MULTIPLE SCLEROSIS
     Route: 048
  4. CALCITRIOL [Concomitant]
  5. CALCIUM + D [Concomitant]
  6. CRANBERRY +VITAMIN C [Concomitant]
  7. CYMBALTA [Concomitant]
  8. HYDRALAZINE HCL [Concomitant]
  9. HYDROXYZINE HCL [Concomitant]
  10. IBUPROFEN [Concomitant]
  11. NAPROSYN [Concomitant]
  12. SKELAXIN [Concomitant]
  13. TYLENOL WITH CODEINE [Concomitant]

REACTIONS (3)
  - Blood pressure increased [Unknown]
  - Flushing [Unknown]
  - Pruritus [Unknown]
